FAERS Safety Report 7801926-9 (Version None)
Quarter: 2011Q4

REPORT INFORMATION
  Report Type: 
  Country: None (occurrence: None)
  Receive Date: 20111007
  Receipt Date: 20110926
  Transmission Date: 20120403
  Serious: Yes (Hospitalization)
  Sender: FDA-Public Use
  Company Number: US-SANOFI-AVENTIS-2011SA062856

PATIENT
  Age: 63 Year
  Sex: Male

DRUGS (10)
  1. DOCETAXEL [Suspect]
     Indication: PROSTATE CANCER METASTATIC
     Route: 065
  2. METFORMIN HYDROCHLORIDE [Concomitant]
  3. ZOLEDRONIC ACID [Concomitant]
     Indication: PROSTATE CANCER METASTATIC
  4. PROCHLORPERAZINE [Concomitant]
  5. CALCIUM CARBONATE [Concomitant]
  6. ZOLADEX [Concomitant]
     Indication: PROSTATE CANCER METASTATIC
  7. ACETAMINOPHEN [Concomitant]
  8. VITAMIN TAB [Concomitant]
  9. ESOMEPRAZOLE SODIUM [Concomitant]
  10. CASODEX [Concomitant]
     Indication: PROSTATE CANCER METASTATIC

REACTIONS (16)
  - HAEMOLYTIC URAEMIC SYNDROME [None]
  - HAPTOGLOBIN DECREASED [None]
  - BLOOD BILIRUBIN UNCONJUGATED INCREASED [None]
  - ASTHENIA [None]
  - PYREXIA [None]
  - RENAL FAILURE ACUTE [None]
  - BLOOD LACTATE DEHYDROGENASE INCREASED [None]
  - OXYGEN SATURATION DECREASED [None]
  - DIARRHOEA [None]
  - MENTAL STATUS CHANGES [None]
  - THROMBOCYTOPENIA [None]
  - THROMBOTIC THROMBOCYTOPENIC PURPURA [None]
  - DECREASED APPETITE [None]
  - PANCYTOPENIA [None]
  - MICROANGIOPATHIC HAEMOLYTIC ANAEMIA [None]
  - SOMNOLENCE [None]
